FAERS Safety Report 9124899 (Version 1)
Quarter: 2013Q1

REPORT INFORMATION
  Report Type: Spontaneous
  Country: US (occurrence: US)
  Receive Date: 20130121
  Receipt Date: 20130121
  Transmission Date: 20140127
  Serious: No
  Sender: FDA-Public Use
  Company Number: US-BAYER-2013-006698

PATIENT
  Age: 87 Year
  Sex: Male
  Weight: 69 kg

DRUGS (3)
  1. ALEVE CAPLET/TABLET,MIDOL EXTENDED RELIEF CAPLET [Suspect]
     Dosage: 2 DF, ONCE
     Route: 048
     Dates: start: 201211, end: 201211
  2. ALEVE CAPLET/TABLET,MIDOL EXTENDED RELIEF CAPLET [Suspect]
     Dosage: 1 DF, QD
     Route: 048
     Dates: start: 201211, end: 201211
  3. SYNTHROID [Concomitant]

REACTIONS (2)
  - Abdominal pain upper [Recovered/Resolved]
  - Dizziness [Recovered/Resolved]
